FAERS Safety Report 8080818-7 (Version None)
Quarter: 2012Q1

REPORT INFORMATION
  Report Type: 
  Country: None (occurrence: None)
  Receive Date: 20120130
  Receipt Date: 20120117
  Transmission Date: 20120608
  Serious: Yes (Hospitalization, Disabling, Other)
  Sender: FDA-Public Use
  Company Number: ES-ROCHE-1033470

PATIENT
  Sex: Male

DRUGS (3)
  1. LUCENTIS [Suspect]
     Route: 050
     Dates: start: 20111214
  2. LUCENTIS [Suspect]
     Indication: AGE-RELATED MACULAR DEGENERATION
     Route: 050
     Dates: start: 20110816
  3. LUCENTIS [Suspect]
     Route: 050
     Dates: start: 20111026

REACTIONS (1)
  - CEREBROVASCULAR ACCIDENT [None]
